FAERS Safety Report 5151083-5 (Version None)
Quarter: 2006Q4

REPORT INFORMATION
  Report Type: 
  Country: None (occurrence: None)
  Receive Date: 20061115
  Receipt Date: 20060901
  Transmission Date: 20070319
  Serious: Yes (Life-Threatening, Hospitalization)
  Sender: FDA-Public Use
  Company Number: JP-ABBOTT-06P-087-0342808-00

PATIENT
  Sex: Male
  Weight: 61.2 kg

DRUGS (11)
  1. EURODIN [Suspect]
     Indication: INSOMNIA
     Route: 048
     Dates: start: 19920801
  2. VEGETAMIN [Suspect]
     Indication: ALCOHOLIC PSYCHOSIS
     Route: 048
     Dates: start: 19920801
  3. LODOPIN [Suspect]
     Indication: INSOMNIA
     Route: 048
     Dates: start: 19920801, end: 20050826
  4. LULLAN [Suspect]
     Indication: ALCOHOLIC PSYCHOSIS
     Route: 048
     Dates: start: 20020101
  5. ETHYL LOFLAZEPATE [Suspect]
     Indication: ALCOHOLIC PSYCHOSIS
     Route: 048
     Dates: start: 19920801
  6. ZOPICLONE [Suspect]
     Indication: INSOMNIA
     Route: 048
     Dates: start: 19920801
  7. HALOPERIDOL [Suspect]
     Indication: INSOMNIA
     Route: 048
     Dates: start: 19920801, end: 20050826
  8. FLUNITRAZEPAM [Suspect]
     Indication: INSOMNIA
     Route: 048
     Dates: start: 19920801, end: 20050826
  9. TRAZODONE HCL [Suspect]
     Indication: INSOMNIA
     Route: 048
     Dates: start: 19920801, end: 20050826
  10. MYSLEE [Suspect]
     Indication: INSOMNIA
     Route: 048
     Dates: end: 20050826
  11. FLURAZEPAM [Suspect]
     Indication: INSOMNIA
     Route: 048
     Dates: start: 19920801

REACTIONS (2)
  - BLOOD CHOLESTEROL DECREASED [None]
  - PULMONARY EMBOLISM [None]
